FAERS Safety Report 6991905-6 (Version None)
Quarter: 2010Q3

REPORT INFORMATION
  Report Type: 
  Country: None (occurrence: None)
  Receive Date: 20100916
  Receipt Date: 20100916
  Transmission Date: 20110219
  Serious: Yes (Other)
  Sender: FDA-Public Use
  Company Number: None

PATIENT
  Sex: Male
  Weight: 112.0385 kg

DRUGS (3)
  1. LIPITOR [Suspect]
     Indication: HYPERLIPIDAEMIA
     Dosage: 80 MG QD PO
     Route: 048
     Dates: start: 20100802, end: 20100913
  2. ZOCOR [Suspect]
     Dosage: 80 MG QD PO
     Route: 048
     Dates: start: 20080711
  3. ZOCOR [Suspect]
     Dosage: 80 MG QD PO
     Route: 048
     Dates: start: 20100717

REACTIONS (2)
  - BACK PAIN [None]
  - MYALGIA [None]
